FAERS Safety Report 15106258 (Version 3)
Quarter: 2018Q3

REPORT INFORMATION
  Report Type: Spontaneous
  Country: AU (occurrence: AU)
  Receive Date: 20180704
  Receipt Date: 20180828
  Transmission Date: 20181010
  Serious: Yes (Hospitalization, Other)
  Sender: FDA-Public Use
  Company Number: AU-AMGEN-AUSSP2018088815

PATIENT
  Age: 72 Year
  Sex: Female
  Weight: 69 kg

DRUGS (13)
  1. PROLIA [Suspect]
     Active Substance: DENOSUMAB
     Indication: OSTEOPOROSIS POSTMENOPAUSAL
     Dosage: 60 MG/ML, Q6MO
     Route: 058
     Dates: start: 20150121, end: 20171025
  2. OLMETEC [Concomitant]
     Active Substance: OLMESARTAN MEDOXOMIL
     Dosage: 40 MG, QD
  3. SERETIDE [Concomitant]
     Active Substance: FLUTICASONE PROPIONATE\SALMETEROL XINAFOATE
     Dosage: 1 PUFF, BID, 125 MCG /25 MCG
  4. VENTOLIN [Concomitant]
     Active Substance: ALBUTEROL SULFATE
     Dosage: 100 MCG/DOSE, AS NECESSARY
  5. FOSAMAX [Suspect]
     Active Substance: ALENDRONATE SODIUM
     Indication: OSTEOPOROSIS
     Dosage: 70 MG, QWK
     Route: 065
     Dates: start: 2009, end: 20140814
  6. PLAVIX [Concomitant]
     Active Substance: CLOPIDOGREL BISULFATE
     Dosage: 75 MG, QD
  7. TEMAZE [Concomitant]
     Active Substance: TEMAZEPAM
     Dosage: 10 MG, AS NECESSARY, 1?3 BEFORE BED
  8. ZANIDIP [Concomitant]
     Active Substance: LERCANIDIPINE HYDROCHLORIDE
     Dosage: 20 MG, QD
  9. PREDNISOLONE. [Concomitant]
     Active Substance: PREDNISOLONE
     Dosage: UNK
  10. SPIRIVA [Concomitant]
     Active Substance: TIOTROPIUM BROMIDE MONOHYDRATE
     Dosage: 2.5 MCG, TWO PUFFS IN MORNING
  11. IMDUR [Concomitant]
     Active Substance: ISOSORBIDE MONONITRATE
     Dosage: 60 MG, QD
  12. MALTOFER [Concomitant]
     Dosage: 370 MG, QD
  13. TRAMADOL/PARACETAMOL [Concomitant]
     Active Substance: ACETAMINOPHEN\TRAMADOL
     Dosage: HALF, BID, P.R.N, 37.5MG;325MG TABLETS

REACTIONS (7)
  - Myopathy [Unknown]
  - Foot fracture [Unknown]
  - Atypical femur fracture [Not Recovered/Not Resolved]
  - Infective exacerbation of chronic obstructive airways disease [Unknown]
  - Fall [Unknown]
  - Gastritis [Unknown]
  - Oral candidiasis [Unknown]

NARRATIVE: CASE EVENT DATE: 20150311
